FAERS Safety Report 22633152 (Version 2)
Quarter: 2023Q2

REPORT INFORMATION
  Report Type: Report from Study
  Country: US (occurrence: US)
  Receive Date: 20230623
  Receipt Date: 20230629
  Transmission Date: 20230722
  Serious: Yes (Other)
  Sender: FDA-Public Use
  Company Number: US-AUROBINDO-AUR-APL-2023-043119

PATIENT
  Age: 63 Year
  Sex: Female

DRUGS (5)
  1. RIBAVIRIN [Suspect]
     Active Substance: RIBAVIRIN
     Indication: Hepatitis E
     Dosage: 600 MILLIGRAM, TWO TIMES A DAY,(SCHEDULED FOR 12 WEEKS.)
     Route: 048
  2. RIBAVIRIN [Suspect]
     Active Substance: RIBAVIRIN
     Dosage: 1000 MILLIGRAM, ONCE A DAY,(ON WEEKS 7 )
     Route: 048
  3. RIBAVIRIN [Suspect]
     Active Substance: RIBAVIRIN
     Dosage: 400 MILLIGRAM, TWO TIMES A DAY
     Route: 048
  4. PEGINTERFERON ALFA-2B [Concomitant]
     Active Substance: PEGINTERFERON ALFA-2B
     Indication: Salvage therapy
     Dosage: UNK
     Route: 065
  5. TISAGENLECLEUCEL [Concomitant]
     Active Substance: TISAGENLECLEUCEL
     Indication: B-cell lymphoma
     Dosage: UNK
     Route: 065

REACTIONS (1)
  - Haemolytic anaemia [Unknown]
